FAERS Safety Report 8419101-6 (Version None)
Quarter: 2012Q2

REPORT INFORMATION
  Report Type: 
  Country: None (occurrence: None)
  Receive Date: 20120601
  Receipt Date: 20120427
  Transmission Date: 20120825
  Serious: No
  Sender: FDA-Public Use
  Company Number: USA/USA/12/0024135

PATIENT
  Age: 53 Year
  Sex: Female
  Weight: 68.0396 kg

DRUGS (7)
  1. TOPAMAX [Concomitant]
  2. ADVAIR HFA [Concomitant]
  3. ALBUTEROL SULFATE AUTOHALER [Concomitant]
  4. NAPROXEN [Concomitant]
  5. SUMATRIPTAN SUCCINATE [Suspect]
     Indication: MIGRAINE
     Dosage: 100 MG, ORAL
     Route: 048
     Dates: start: 20111101
  6. FLEXERIL (CEFIXIME) [Concomitant]
  7. OXYCONTIN [Concomitant]

REACTIONS (2)
  - PRODUCT QUALITY ISSUE [None]
  - THERAPEUTIC RESPONSE DELAYED [None]
